FAERS Safety Report 17429053 (Version 1)
Quarter: 2020Q1

REPORT INFORMATION
  Report Type: Other
  Country: US (occurrence: US)
  Receive Date: 20200217
  Receipt Date: 20200217
  Transmission Date: 20200409
  Serious: No
  Sender: FDA-Public Use
  Company Number: US-FAGRON STERILE SERVICES-2080556

PATIENT
  Age: 20 Year
  Sex: Female

DRUGS (1)
  1. 2000056-TRIAMCINOLONE ACETONIDE SUSPENSION FOR INJECTION, 40 MG/ML, PR [Suspect]
     Active Substance: TRIAMCINOLONE ACETONIDE
     Dates: start: 20200204, end: 20200204

REACTIONS (1)
  - Eye inflammation [None]

NARRATIVE: CASE EVENT DATE: 20200204
